FAERS Safety Report 8410860-5 (Version None)
Quarter: 2012Q2

REPORT INFORMATION
  Report Type: 
  Country: None (occurrence: None)
  Receive Date: 20120605
  Receipt Date: 20120604
  Transmission Date: 20120825
  Serious: Yes (Death)
  Sender: FDA-Public Use
  Company Number: PHHY2012DO023548

PATIENT
  Age: 81 Year
  Sex: Male

DRUGS (1)
  1. EXFORGE [Suspect]
     Dosage: 160MG VALS/5MG AMLO, UNK

REACTIONS (1)
  - DEATH [None]
